FAERS Safety Report 18551642 (Version 1)
Quarter: 2020Q4

REPORT INFORMATION
  Report Type: Report from Study
  Country: US (occurrence: US)
  Receive Date: 20201126
  Receipt Date: 20201126
  Transmission Date: 20210114
  Serious: No
  Sender: FDA-Public Use
  Company Number: NVSC2020US311210

PATIENT
  Sex: Female

DRUGS (1)
  1. COSENTYX [Suspect]
     Active Substance: SECUKINUMAB
     Indication: PSORIATIC ARTHROPATHY
     Dosage: 150 MG, QW
     Route: 058

REACTIONS (4)
  - Hypersensitivity [Recovering/Resolving]
  - Pharyngeal swelling [Recovering/Resolving]
  - Mouth ulceration [Recovering/Resolving]
  - Swollen tongue [Recovering/Resolving]
